FAERS Safety Report 5815614-1 (Version None)
Quarter: 2008Q3

REPORT INFORMATION
  Report Type: 
  Country: None (occurrence: None)
  Receive Date: 20080716
  Receipt Date: 20080703
  Transmission Date: 20090109
  Serious: Yes (Hospitalization, Other)
  Sender: FDA-Public Use
  Company Number: 234478J08USA

PATIENT
  Age: 45 Year
  Sex: Female

DRUGS (2)
  1. REBIF [Suspect]
     Indication: MULTIPLE SCLEROSIS
     Dosage: 44 MCG, 3 IN 1 WEEKS, SUBCUTANEOUS
     Route: 057
     Dates: start: 20060814
  2. UNSPECIFIED MEDICATIONS(ALL OTHER THERAPEUTIC PRODUCTS) [Concomitant]

REACTIONS (15)
  - BLOOD PRESSURE INCREASED [None]
  - CHEST DISCOMFORT [None]
  - CHEST PAIN [None]
  - CONDITION AGGRAVATED [None]
  - DYSPNOEA [None]
  - FALL [None]
  - HYPERHIDROSIS [None]
  - HYPOAESTHESIA [None]
  - LIP DISCOLOURATION [None]
  - MULTIPLE SCLEROSIS [None]
  - NAIL DISCOLOURATION [None]
  - PALPITATIONS [None]
  - SECONDARY PROGRESSIVE MULTIPLE SCLEROSIS [None]
  - VOMITING [None]
  - WEIGHT DECREASED [None]
